FAERS Safety Report 18495984 (Version 2)
Quarter: 2020Q4

REPORT INFORMATION
  Report Type: Report from Study
  Country: None (occurrence: CA)
  Receive Date: 20201112
  Receipt Date: 20201117
  Transmission Date: 20210114
  Serious: Yes (Hospitalization, Other)
  Sender: FDA-Public Use
  Company Number: CA-ABBVIE-20K-028-3647351-00

PATIENT
  Sex: Female

DRUGS (1)
  1. HUMIRA [Suspect]
     Active Substance: ADALIMUMAB
     Indication: CROHN^S DISEASE
     Route: 058
     Dates: start: 20150721

REACTIONS (23)
  - Infrequent bowel movements [Not Recovered/Not Resolved]
  - Migraine [Unknown]
  - Small intestinal stenosis [Not Recovered/Not Resolved]
  - Obstruction gastric [Unknown]
  - Flatulence [Unknown]
  - Diarrhoea [Not Recovered/Not Resolved]
  - Blood iron decreased [Not Recovered/Not Resolved]
  - Abdominal pain [Unknown]
  - Asthma [Unknown]
  - Duodenal stenosis [Not Recovered/Not Resolved]
  - Inflammation [Unknown]
  - Crohn^s disease [Unknown]
  - Inflammatory bowel disease [Unknown]
  - Intussusception [Unknown]
  - Transferrin saturation decreased [Not Recovered/Not Resolved]
  - Gastrointestinal motility disorder [Unknown]
  - Stenosis [Unknown]
  - Sinusitis [Unknown]
  - Small intestinal obstruction [Not Recovered/Not Resolved]
  - Gastrointestinal scarring [Unknown]
  - Haemorrhoids [Not Recovered/Not Resolved]
  - Intestinal stenosis [Unknown]
  - Acrochordon [Not Recovered/Not Resolved]
